FAERS Safety Report 11634594 (Version 1)
Quarter: 2015Q4

REPORT INFORMATION
  Report Type: Report from Study
  Country: US (occurrence: US)
  Receive Date: 20151015
  Receipt Date: 20151015
  Transmission Date: 20160304
  Serious: Yes (Hospitalization)
  Sender: FDA-Public Use
  Company Number: US-ACTELION-A-NJ2015-120921

PATIENT
  Age: 50 Year
  Sex: Female

DRUGS (3)
  1. CIALIS [Concomitant]
     Active Substance: TADALAFIL
  2. OXYGEN. [Concomitant]
     Active Substance: OXYGEN
     Dosage: 3 L, PRN
  3. MACITENTAN [Suspect]
     Active Substance: MACITENTAN
     Indication: PULMONARY HYPERTENSION
     Dosage: 10 MG, UNK
     Route: 048
     Dates: start: 20141021

REACTIONS (16)
  - Peripheral swelling [Unknown]
  - Fibromyalgia [Unknown]
  - Flank pain [Unknown]
  - Oedema peripheral [Unknown]
  - Pericardial effusion [Unknown]
  - Fatigue [Unknown]
  - Dyspnoea [Unknown]
  - Blood count abnormal [Unknown]
  - Pain [Unknown]
  - Cardiac discomfort [Unknown]
  - Vomiting [Unknown]
  - Sleep disorder [Unknown]
  - Loss of consciousness [Unknown]
  - Nausea [Unknown]
  - Malaise [Unknown]
  - Back pain [Unknown]
